FAERS Safety Report 9803235 (Version 3)
Quarter: 2014Q1

REPORT INFORMATION
  Report Type: Report from Study
  Country: MX (occurrence: MX)
  Receive Date: 20140108
  Receipt Date: 20140219
  Transmission Date: 20141002
  Serious: Yes (Hospitalization, Other)
  Sender: FDA-Public Use
  Company Number: PHHY2011MX90306

PATIENT
  Age: 76 Year
  Sex: Female

DRUGS (13)
  1. MIFLONIDE [Suspect]
     Indication: ASTHMA
     Dosage: 3 DF, (3 TABLETS PER DAY)
     Route: 055
     Dates: start: 201012
  2. MIFLONIDE [Suspect]
     Dosage: 2 DF, (2 DF DAILY)
     Route: 055
     Dates: start: 2010
  3. MIFLONIDE [Suspect]
     Dosage: 1 DF, (1 DF, EACH 12 HOURS)
     Route: 055
     Dates: start: 201102, end: 20131209
  4. FORADIL [Suspect]
     Indication: ASTHMA
     Dosage: UNK
     Route: 055
  5. FORADIL [Suspect]
     Dosage: 2 DF, (1 MORNING + 1 NIGHT)
     Route: 055
     Dates: start: 201102
  6. ADALAT [Concomitant]
     Dosage: 1 DF, QD
     Dates: start: 200901
  7. LOPRESSOR [Concomitant]
     Dosage: UNK UKN, UNK
     Dates: start: 201101
  8. CAPTOPRIL [Concomitant]
     Dosage: UNK UKN, UNK
     Dates: start: 2008, end: 2008
  9. SPIRIVA [Concomitant]
     Dosage: 1 UKN, UNK
     Dates: start: 2011
  10. METOPROLOL [Concomitant]
     Indication: HYPERTENSION
     Dosage: 100 MG, UNK
     Dates: start: 2009
  11. COAPROVEL [Concomitant]
     Indication: HYPERTENSION
     Dosage: 150 MG, UNK
     Dates: start: 2012
  12. NIFEDIPINO [Concomitant]
     Indication: HYPERTENSION
     Dosage: 1 DF, UNK
     Dates: start: 2008, end: 2009
  13. ADEL                               /01783701/ [Concomitant]
     Dosage: 1 DF, DAILY
     Route: 048

REACTIONS (9)
  - Asthmatic crisis [Recovered/Resolved]
  - Feeling abnormal [Unknown]
  - Obstructive airways disorder [Recovered/Resolved]
  - Cyanosis [Recovered/Resolved]
  - Dyspnoea [Not Recovered/Not Resolved]
  - Asthma [Unknown]
  - Disease complication [Recovered/Resolved with Sequelae]
  - Neck pain [Recovered/Resolved]
  - Anger [Unknown]
